FAERS Safety Report 4788704-2 (Version None)
Quarter: 2005Q3

REPORT INFORMATION
  Report Type: 
  Country: None (occurrence: None)
  Receive Date: 20050915
  Receipt Date: 20050715
  Transmission Date: 20060218
  Serious: No
  Sender: FDA-Public Use
  Company Number: BDI-007373

PATIENT
  Sex: Male
  Weight: 109 kg

DRUGS (1)
  1. MULTIHANCE [Suspect]
     Dosage: 20 ML ONCE IV
     Route: 042
     Dates: start: 20050714, end: 20050714

REACTIONS (1)
  - EYE SWELLING [None]
